FAERS Safety Report 5878596-2 (Version None)
Quarter: 2008Q3

REPORT INFORMATION
  Report Type: 
  Country: None (occurrence: None)
  Receive Date: 20080910
  Receipt Date: 20080902
  Transmission Date: 20090109
  Serious: Yes (Hospitalization, Other)
  Sender: FDA-Public Use
  Company Number: 2008SP017980

PATIENT
  Age: 27 Year
  Sex: Female

DRUGS (3)
  1. PEG-INTRON [Suspect]
     Indication: HEPATITIS C
     Dosage: 90 MCG;QW;SC
     Route: 058
     Dates: start: 20080717
  2. REBETOL (RIBVARIN) [Suspect]
     Indication: HEPATITIS C
     Dosage: 600 MG;BID;PO
     Route: 048
     Dates: start: 20080717
  3. PROCRIT [Suspect]
     Dosage: SRINR

REACTIONS (7)
  - CONDITION AGGRAVATED [None]
  - OEDEMA PERIPHERAL [None]
  - PAIN [None]
  - PANCYTOPENIA [None]
  - PELVIC PAIN [None]
  - VAGINAL HAEMORRHAGE [None]
  - VEIN DISORDER [None]
